FAERS Safety Report 10205552 (Version 1)
Quarter: 2014Q2

REPORT INFORMATION
  Report Type: Spontaneous
  Country: ES (occurrence: ES)
  Receive Date: 20140529
  Receipt Date: 20140529
  Transmission Date: 20141212
  Serious: Yes (Other)
  Sender: FDA-Public Use
  Company Number: ES-ACTAVIS-2014-11569

PATIENT
  Age: 83 Year
  Sex: Male

DRUGS (3)
  1. ACENOCOUMAROL (UNKNOWN) [Suspect]
     Indication: ATRIAL FIBRILLATION
     Dosage: UNKNOWN, IN THE AFTERNOON
     Route: 065
  2. LOSARTAN (UNKNOWN) [Interacting]
     Indication: HYPERTENSION
     Dosage: 100 MG, QAM
     Route: 065
  3. HYDROCHLOROTHIAZIDE [Concomitant]
     Indication: HYPERTENSION
     Dosage: 25 MG, QAM
     Route: 065

REACTIONS (3)
  - International normalised ratio fluctuation [Recovered/Resolved]
  - Blood pressure inadequately controlled [Recovered/Resolved]
  - Drug interaction [Unknown]
